FAERS Safety Report 9682859 (Version 1)
Quarter: 2013Q4

REPORT INFORMATION
  Report Type: Spontaneous
  Country: US (occurrence: None)
  Receive Date: 20131111
  Receipt Date: 20131111
  Transmission Date: 20140711
  Serious: No
  Sender: FDA-Public Use
  Company Number: None

PATIENT
  Age: 48 Year
  Sex: Female

DRUGS (1)
  1. TOBRADEX [Suspect]
     Dosage: INSTILL 1 DROP INTO BOTH EYES
     Route: 047
     Dates: start: 20131025, end: 20131108

REACTIONS (2)
  - Headache [None]
  - Metamorphopsia [None]
